FAERS Safety Report 4778835-5 (Version None)
Quarter: 2005Q3

REPORT INFORMATION
  Report Type: 
  Country: None (occurrence: None)
  Receive Date: 20050926
  Receipt Date: 20050914
  Transmission Date: 20060218
  Serious: Yes (Life-Threatening, Hospitalization, Other)
  Sender: FDA-Public Use
  Company Number: US-JNJFOC-20050904250

PATIENT
  Sex: Male
  Weight: 80 kg

DRUGS (16)
  1. DURAGESIC-100 [Suspect]
     Route: 062
  2. DURAGESIC-100 [Suspect]
     Route: 062
  3. PEGASYS [Concomitant]
     Indication: HEPATITIS C
     Route: 058
  4. RIBAVIRIN [Concomitant]
     Indication: HEPATITIS C
     Route: 048
  5. ADVIL [Concomitant]
     Indication: ARTHRALGIA
     Route: 048
  6. ADVIL [Concomitant]
     Route: 048
  7. AMBIEN [Concomitant]
     Indication: INSOMNIA
     Route: 048
  8. ZYRTEC [Concomitant]
     Route: 048
  9. LUNESTA [Concomitant]
     Indication: SLEEP DISORDER THERAPY
     Route: 048
  10. LUNESTA [Concomitant]
     Indication: INSOMNIA
     Route: 048
  11. TRAMADOL [Concomitant]
     Route: 048
  12. ALPRAZOLAM [Concomitant]
     Indication: AGGRESSION
  13. ALPRAZOLAM [Concomitant]
     Indication: ANXIETY
  14. TYLENOL (CAPLET) [Concomitant]
     Indication: PROPHYLAXIS
     Route: 048
  15. ESCITALOPRAM OXALATE [Concomitant]
     Route: 048
  16. ESCITALOPRAM OXALATE [Concomitant]
     Indication: ANTIDEPRESSANT THERAPY
     Route: 048

REACTIONS (7)
  - ALCOHOL WITHDRAWAL SYNDROME [None]
  - BIPOLAR DISORDER [None]
  - DRUG ADMINISTRATION ERROR [None]
  - OVERDOSE [None]
  - RENAL FAILURE ACUTE [None]
  - RESPIRATORY FAILURE [None]
  - RHABDOMYOLYSIS [None]
